FAERS Safety Report 5061371-9 (Version None)
Quarter: 2006Q3

REPORT INFORMATION
  Report Type: 
  Country: None (occurrence: None)
  Receive Date: 20060719
  Receipt Date: 20060719
  Transmission Date: 20061208
  Serious: Yes (Hospitalization)
  Sender: FDA-Public Use
  Company Number: None

PATIENT
  Age: 60 Year
  Sex: Female

DRUGS (11)
  1. ZIPRASIDONE HCL [Suspect]
     Indication: SCHIZOPHRENIA
     Dosage: 60 MG BID
     Dates: start: 20060301
  2. CLONAZEPAM [Suspect]
     Indication: ANXIETY
     Dosage: 0.5 MG Q6H + HS PRN
     Dates: start: 20051101
  3. ATENOLOL [Concomitant]
  4. WELLBUTRIN XL [Concomitant]
  5. TRAZODONE HCL [Concomitant]
  6. METHOCARBAMOL [Concomitant]
  7. ETODOLAC [Concomitant]
  8. TRAMADOL HCL [Concomitant]
  9. POTASSIUM CHLORIDE [Concomitant]
  10. HYDROXYZINE [Concomitant]
  11. LOSARTAN POSTASSIUM [Concomitant]

REACTIONS (1)
  - DIZZINESS [None]
